FAERS Safety Report 7235785-2 (Version None)
Quarter: 2011Q1

REPORT INFORMATION
  Report Type: 
  Country: None (occurrence: None)
  Receive Date: 20110120
  Receipt Date: 20110111
  Transmission Date: 20110831
  Serious: Yes (Hospitalization)
  Sender: FDA-Public Use
  Company Number: US-ASTRAZENECA-2011SE01992

PATIENT
  Sex: Female

DRUGS (2)
  1. DOXYCYCLINE [Concomitant]
  2. NEXIUM [Suspect]
     Route: 048

REACTIONS (7)
  - PNEUMONIA FUNGAL [None]
  - ULCER [None]
  - DRUG DOSE OMISSION [None]
  - FATIGUE [None]
  - PYREXIA [None]
  - VOMITING [None]
  - DYSPNOEA [None]
